FAERS Safety Report 8097590-7 (Version None)
Quarter: 2012Q1

REPORT INFORMATION
  Report Type: 
  Country: None (occurrence: None)
  Receive Date: 20120128
  Receipt Date: 20110617
  Transmission Date: 20120608
  Serious: No
  Sender: FDA-Public Use
  Company Number: US-ABBOTT-11P-163-0733840-00

PATIENT
  Age: 41 Year
  Sex: Female

DRUGS (5)
  1. PREDNISONE TAB [Concomitant]
     Indication: PAIN IN EXTREMITY
     Dosage: WEANING SCHEDULE; DOWN TO 5 MG
     Dates: start: 20110201
  2. ESTRADIOL [Concomitant]
     Indication: HORMONE REPLACEMENT THERAPY
     Route: 048
  3. HUMIRA [Suspect]
     Indication: PSORIATIC ARTHROPATHY
     Dosage: INTERRUPTED THERAPY
     Dates: start: 20110521
  4. MULTIPLE VITAMINS [Concomitant]
     Indication: PRODUCT USED FOR UNKNOWN INDICATION
     Dosage: 8 VITAMINS DAILY EVERY MORNING
  5. PRILOSEC [Suspect]
     Indication: GASTROINTESTINAL DISORDER
     Dosage: DAILY

REACTIONS (2)
  - SINUSITIS [None]
  - NAUSEA [None]
